FAERS Safety Report 9319174 (Version 1)
Quarter: 2013Q2

REPORT INFORMATION
  Report Type: Spontaneous
  Country: NL (occurrence: NL)
  Receive Date: 20130530
  Receipt Date: 20130530
  Transmission Date: 20140414
  Serious: Yes (Death, Hospitalization, Other)
  Sender: FDA-Public Use
  Company Number: NL-AMGEN-NLDSP2013037442

PATIENT
  Age: 74 Year
  Sex: Male

DRUGS (1)
  1. DENOSUMAB [Suspect]
     Indication: METASTASES TO BONE
     Dosage: 60 MG, Q6MO
     Route: 058
     Dates: start: 200710

REACTIONS (6)
  - Death [Fatal]
  - Infective glossitis [Not Recovered/Not Resolved]
  - Oedema mouth [Not Recovered/Not Resolved]
  - Metastases to central nervous system [Unknown]
  - Osteonecrosis of jaw [Not Recovered/Not Resolved]
  - Oral disorder [Unknown]
